FAERS Safety Report 19499626 (Version 1)
Quarter: 2021Q3

REPORT INFORMATION
  Report Type: Spontaneous
  Country: CN (occurrence: CN)
  Receive Date: 20210706
  Receipt Date: 20210706
  Transmission Date: 20211014
  Serious: Yes (Other)
  Sender: FDA-Public Use
  Company Number: CN-SA-2021SA211883

PATIENT
  Age: 73 Year
  Sex: Female

DRUGS (1)
  1. LANTUS [Suspect]
     Active Substance: INSULIN GLARGINE
     Indication: DIABETES MELLITUS
     Dosage: 30 IU,QD
     Route: 058
     Dates: start: 20210314, end: 20210321

REACTIONS (2)
  - Induration [Recovering/Resolving]
  - Erythema induratum [Recovering/Resolving]

NARRATIVE: CASE EVENT DATE: 20210321
